FAERS Safety Report 9179285 (Version 1)
Quarter: 2012Q4

REPORT INFORMATION
  Report Type: 
  Country: US (occurrence: US)
  Receive Date: 20121029
  Receipt Date: 20121029
  Transmission Date: 20130627
  Serious: No
  Sender: FDA-Public Use
  Company Number: US-AMGEN-USASP2012052663

PATIENT
  Sex: Female

DRUGS (15)
  1. ENBREL [Suspect]
     Indication: PRODUCT USED FOR UNKNOWN INDICATION
     Dosage: 50 mg, qwk
     Route: 058
  2. XYZAL [Concomitant]
     Dosage: 5 mg, UNK
  3. CELEBREX [Concomitant]
     Dosage: 50 mg, UNK
  4. PAXIL [Concomitant]
     Dosage: 10 mg, UNK
  5. LIPITOR [Concomitant]
     Dosage: 10 mg, UNK
  6. PRANDIN                            /00882701/ [Concomitant]
     Dosage: 1 mg, UNK
  7. PLAVIX [Concomitant]
     Dosage: 75 mg, UNK
  8. VITAMIN D /00107901/ [Concomitant]
     Dosage: 2000 UNK, UNK
  9. ABILIFY [Concomitant]
     Dosage: 10 mg, UNK
  10. PROVIGIL [Concomitant]
     Dosage: 100 mg, UNK
  11. ACIPHEX [Concomitant]
     Dosage: 20 mg, UNK
  12. DITROPAN [Concomitant]
     Dosage: 5 mg, UNK
  13. CALCIUM +D                         /00944201/ [Concomitant]
     Dosage: UNK
  14. FOLIC ACID [Concomitant]
     Dosage: UNK
  15. METHOTREXATE [Concomitant]
     Dosage: 20 mg, UNK

REACTIONS (2)
  - Impaired healing [Unknown]
  - Wound [Unknown]
